FAERS Safety Report 9619592 (Version 2)
Quarter: 2013Q4

REPORT INFORMATION
  Report Type: Report from Study
  Country: GB (occurrence: GB)
  Receive Date: 20131014
  Receipt Date: 20131018
  Transmission Date: 20140711
  Serious: Yes (Hospitalization)
  Sender: FDA-Public Use
  Company Number: GB-GLAXOSMITHKLINE-B0930003A

PATIENT
  Age: 79 Year
  Sex: Male
  Weight: 74.3 kg

DRUGS (10)
  1. OFATUMUMAB [Suspect]
     Indication: CHRONIC LYMPHOCYTIC LEUKAEMIA
     Route: 042
     Dates: start: 20130904
  2. CHLORAMBUCIL [Suspect]
     Indication: CHRONIC LYMPHOCYTIC LEUKAEMIA
     Route: 048
     Dates: start: 20130904
  3. ALLOPURINOL [Suspect]
     Route: 048
     Dates: start: 20130904
  4. PARACETAMOL [Concomitant]
     Route: 048
     Dates: start: 20130904
  5. CHLORPHENIRAMINE [Concomitant]
     Route: 042
     Dates: start: 20130904
  6. PREDNISOLONE [Concomitant]
     Route: 048
     Dates: start: 20130904
  7. ACICLOVIR [Concomitant]
     Route: 048
     Dates: start: 20130904
  8. GRANULOCYTE COLONY-STIMULATING FACTOR NOS [Concomitant]
  9. DOMPERIDONE [Concomitant]
     Route: 048
     Dates: start: 20130904
  10. METOCLOPRAMIDE [Concomitant]

REACTIONS (2)
  - Febrile neutropenia [Not Recovered/Not Resolved]
  - Rash maculo-papular [Not Recovered/Not Resolved]
